FAERS Safety Report 23756428 (Version 1)
Quarter: 2024Q2

REPORT INFORMATION
  Report Type: Spontaneous
  Country: US (occurrence: US)
  Receive Date: 20240418
  Receipt Date: 20240418
  Transmission Date: 20240715
  Serious: No
  Sender: FDA-Public Use
  Company Number: US-Merck Healthcare KGaA-2024019699

PATIENT
  Age: 63 Year
  Sex: Female

DRUGS (1)
  1. MAVENCLAD [Suspect]
     Active Substance: CLADRIBINE
     Indication: Multiple sclerosis
     Dosage: THERAPY
     Route: 048

REACTIONS (5)
  - Vitamin D decreased [Unknown]
  - Vitamin K decreased [Unknown]
  - Fatigue [Unknown]
  - Mood altered [Unknown]
  - Loss of personal independence in daily activities [Unknown]
